FAERS Safety Report 7296329-2 (Version None)
Quarter: 2011Q1

REPORT INFORMATION
  Report Type: 
  Country: None (occurrence: None)
  Receive Date: 20110216
  Receipt Date: 20110209
  Transmission Date: 20110831
  Serious: Yes (Other)
  Sender: FDA-Public Use
  Company Number: US-SOLVAY-00211001065

PATIENT
  Age: 551 Month
  Sex: Male
  Weight: 85.454 kg

DRUGS (1)
  1. ANDROGEL [Suspect]
     Indication: BLOOD TESTOSTERONE DECREASED
     Dosage: DAILY DOSE:  UNKNOWN
     Route: 062
     Dates: start: 20101201, end: 20110101

REACTIONS (6)
  - THROAT TIGHTNESS [None]
  - PRURITUS GENERALISED [None]
  - JOINT SWELLING [None]
  - OEDEMA PERIPHERAL [None]
  - URTICARIA [None]
  - RASH [None]
